FAERS Safety Report 7062285-5 (Version None)
Quarter: 2010Q4

REPORT INFORMATION
  Report Type: 
  Country: None (occurrence: None)
  Receive Date: 20101026
  Receipt Date: 20101019
  Transmission Date: 20110411
  Serious: Yes (Other)
  Sender: FDA-Public Use
  Company Number: CHPA2010US16461

PATIENT
  Age: 52 Year
  Sex: Female
  Weight: 63.492 kg

DRUGS (2)
  1. EXCEDRIN PM EXPRESS GELS (NCH) [Suspect]
     Indication: HEADACHE
     Dosage: 2 GELCAPS, ONCE A DAY
     Route: 048
     Dates: start: 20101001, end: 20101001
  2. EXCEDRIN PM EXPRESS GELS (NCH) [Suspect]
     Indication: INSOMNIA

REACTIONS (2)
  - AMNESIA [None]
  - CONFUSIONAL STATE [None]
